FAERS Safety Report 5905007-0 (Version None)
Quarter: 2008Q4

REPORT INFORMATION
  Report Type: 
  Country: None (occurrence: None)
  Receive Date: 20081001
  Receipt Date: 20080924
  Transmission Date: 20090506
  Serious: No
  Sender: FDA-Public Use
  Company Number: BR-ROCHE-588387

PATIENT
  Sex: Female

DRUGS (1)
  1. ROACUTAN [Suspect]
     Indication: SEBORRHOEA
     Route: 048
     Dates: start: 20071001, end: 20080401

REACTIONS (2)
  - NO ADVERSE EVENT [None]
  - PREGNANCY [None]
